FAERS Safety Report 6816431-6 (Version None)
Quarter: 2010Q3

REPORT INFORMATION
  Report Type: 
  Country: None (occurrence: None)
  Receive Date: 20100705
  Receipt Date: 20100701
  Transmission Date: 20110219
  Serious: Yes (Other)
  Sender: FDA-Public Use
  Company Number: DE-BRISTOL-MYERS SQUIBB COMPANY-15097058

PATIENT
  Age: 74 Year
  Sex: Female

DRUGS (3)
  1. TAXOL [Suspect]
     Indication: BREAST CANCER
  2. AVASTIN [Suspect]
     Indication: BREAST CANCER
  3. KEVATRIL [Suspect]
     Indication: BREAST CANCER

REACTIONS (5)
  - DIARRHOEA HAEMORRHAGIC [None]
  - DYSPHAGIA [None]
  - PERIPHERAL VASCULAR DISORDER [None]
  - VOMITING [None]
  - WHITE BLOOD CELL COUNT DECREASED [None]
